FAERS Safety Report 9984609 (Version 1)
Quarter: 2014Q1

REPORT INFORMATION
  Report Type: Report from Study
  Country: US (occurrence: US)
  Receive Date: 20140304
  Receipt Date: 20140304
  Transmission Date: 20141002
  Serious: No
  Sender: FDA-Public Use
  Company Number: US-ABBVIE-13P-163-1075257-00

PATIENT
  Age: 58 Year
  Sex: Female

DRUGS (9)
  1. HUMIRA [Suspect]
     Indication: PSORIATIC ARTHROPATHY
     Dates: start: 201109
  2. NAPROXEN [Concomitant]
     Indication: PSORIATIC ARTHROPATHY
     Route: 048
  3. VITAMIN C + ZINK [Concomitant]
     Indication: VITAMIN SUPPLEMENTATION
     Route: 048
  4. GLUCOSAMINE + CHONDROITIN WITH MSM [Concomitant]
     Indication: NUTRITIONAL SUPPLEMENTATION
     Route: 048
  5. MULTIVITAMIN [Concomitant]
     Indication: VITAMIN SUPPLEMENTATION
     Route: 048
  6. TYLENOL ARTHRITIS [Concomitant]
     Indication: PRODUCT USED FOR UNKNOWN INDICATION
     Dosage: 2-4 TABLETS DAILY
     Route: 048
  7. LORATADINE [Concomitant]
     Indication: SEASONAL ALLERGY
     Dosage: 10 MG DAILY
     Route: 048
  8. OMEPRAZOLE [Concomitant]
     Indication: PROPHYLAXIS AGAINST GASTROINTESTINAL ULCER
     Route: 048
  9. METHOTREXATE [Concomitant]
     Indication: PSORIATIC ARTHROPATHY
     Route: 048

REACTIONS (3)
  - Tongue discolouration [Not Recovered/Not Resolved]
  - Oral pain [Not Recovered/Not Resolved]
  - Epicondylitis [Not Recovered/Not Resolved]
